FAERS Safety Report 8795772 (Version 1)
Quarter: 2012Q4

REPORT INFORMATION
  Report Type: 
  Country: KR (occurrence: KR)
  Receive Date: 20120920
  Receipt Date: 20120920
  Transmission Date: 20130627
  Serious: Yes (Death, Hospitalization)
  Sender: FDA-Public Use
  Company Number: KR-BAYER-2012-096086

PATIENT
  Age: 42 Year
  Sex: Male

DRUGS (9)
  1. SORAFENIB (RAF KINASE INHIBITOR) [Suspect]
     Indication: HEPATIC NEOPLASM MALIGNANT
     Dosage: 800 mg, daily dose
     Route: 048
     Dates: start: 20110419, end: 20111207
  2. SORAFENIB (RAF KINASE INHIBITOR) [Suspect]
     Indication: HEPATIC NEOPLASM MALIGNANT
     Dosage: 400 mg, daily dose
     Route: 048
     Dates: start: 20120113, end: 20120205
  3. SORAFENIB (RAF KINASE INHIBITOR) [Suspect]
     Indication: HEPATIC NEOPLASM MALIGNANT
     Dosage: 400 mg, daily dose
     Route: 048
     Dates: end: 20120411
  4. PLACEBO [Suspect]
     Indication: HEPATIC NEOPLASM MALIGNANT
     Dosage: UNK
     Route: 048
     Dates: start: 20110419, end: 20111207
  5. PLACEBO [Suspect]
     Indication: HEPATIC NEOPLASM MALIGNANT
     Dosage: UNK
     Route: 048
     Dates: start: 20120113, end: 20120205
  6. PLACEBO [Suspect]
     Indication: HEPATIC NEOPLASM MALIGNANT
     Dosage: UNK
     Route: 048
     Dates: end: 20120411
  7. BARACLUDE [Concomitant]
     Dosage: UNK
     Dates: start: 20100829
  8. ATACAND PLUS [Concomitant]
     Dosage: UNK
     Dates: start: 20100828
  9. NORVASC [Concomitant]
     Dosage: UNK
     Dates: start: 20100828

REACTIONS (3)
  - Neoplasm malignant [Fatal]
  - Proteinuria [Not Recovered/Not Resolved]
  - Hypoalbuminaemia [Not Recovered/Not Resolved]
